FAERS Safety Report 18785691 (Version 1)
Quarter: 2021Q1

REPORT INFORMATION
  Report Type: Spontaneous
  Country: US (occurrence: US)
  Receive Date: 20210125
  Receipt Date: 20210125
  Transmission Date: 20210419
  Serious: No
  Sender: FDA-Public Use
  Company Number: US-ROCHE-2615054

PATIENT
  Sex: Female

DRUGS (1)
  1. RITUXAN [Suspect]
     Active Substance: RITUXIMAB
     Indication: RHEUMATOID ARTHRITIS
     Dosage: EVERY 2 WEEKS INITIALLY AND THEN SIX MONTHS
     Route: 041
     Dates: start: 20200525

REACTIONS (2)
  - No adverse event [Unknown]
  - Drug ineffective [Unknown]
